FAERS Safety Report 7860066-3 (Version None)
Quarter: 2011Q4

REPORT INFORMATION
  Report Type: 
  Country: None (occurrence: None)
  Receive Date: 20111025
  Receipt Date: 20111013
  Transmission Date: 20120403
  Serious: Yes (Hospitalization)
  Sender: FDA-Public Use
  Company Number: 2011S1000082

PATIENT
  Sex: Male

DRUGS (1)
  1. KRYSTEXXA [Suspect]

REACTIONS (1)
  - PNEUMONIA [None]
